FAERS Safety Report 7335062-5 (Version None)
Quarter: 2011Q1

REPORT INFORMATION
  Report Type: 
  Country: None (occurrence: None)
  Receive Date: 20110307
  Receipt Date: 20110303
  Transmission Date: 20110831
  Serious: Yes (Hospitalization)
  Sender: FDA-Public Use
  Company Number: CH-ROCHE-763612

PATIENT
  Sex: Female

DRUGS (5)
  1. SYSTEN [Concomitant]
     Indication: MENOPAUSE
     Route: 062
  2. BONIVA [Suspect]
     Route: 048
     Dates: start: 20070101, end: 20101115
  3. SORTIS [Concomitant]
     Route: 048
  4. ACTONEL [Suspect]
     Route: 048
     Dates: start: 20040101, end: 20070101
  5. FOSAMAX [Suspect]
     Route: 048
     Dates: start: 20000101, end: 20040101

REACTIONS (1)
  - LOWER LIMB FRACTURE [None]
